FAERS Safety Report 12940334 (Version 1)
Quarter: 2016Q4

REPORT INFORMATION
  Report Type: Spontaneous
  Country: US (occurrence: US)
  Receive Date: 20161115
  Receipt Date: 20161115
  Transmission Date: 20170207
  Serious: Yes (Disabling)
  Sender: FDA-Public Use
  Company Number: None

PATIENT
  Age: 56 Year
  Sex: Female
  Weight: 74.25 kg

DRUGS (18)
  1. PROBIOTICS [Concomitant]
     Active Substance: PROBIOTICS NOS
  2. COQ10 [Concomitant]
     Active Substance: UBIDECARENONE
  3. ALPHA LIPOIC ACID [Concomitant]
     Active Substance: .ALPHA.-LIPOIC ACID
  4. L-ARGININE [Concomitant]
     Active Substance: ARGININE
  5. MELATONIN [Concomitant]
     Active Substance: MELATONIN
  6. AMLODIPINE, FOR NORVASC [Suspect]
     Active Substance: AMLODIPINE BESYLATE
     Indication: BLOOD PRESSURE MEASUREMENT
     Dosage: ?          QUANTITY:30 TABLET(S);?
     Route: 048
     Dates: start: 20160511, end: 20160903
  7. MULTI VITAMIN [Concomitant]
     Active Substance: VITAMINS
  8. RESVERATROL [Concomitant]
     Active Substance: RESVERATROL
  9. CALCIUM [Concomitant]
     Active Substance: CALCIUM
  10. GRAPESEED EXTRACT [Concomitant]
  11. OMEGA COMPLETE [Concomitant]
  12. BENADRYL [Concomitant]
     Active Substance: DIPHENHYDRAMINE HYDROCHLORIDE
  13. VITAMIN B COMPLEX [Concomitant]
     Active Substance: CYANOCOBALAMIN\DEXPANTHENOL\NIACINAMIDE\PYRIDOXINE HYDROCHLORIDE\RIBOFLAVIN 5^-PHOSPHATE SODIUM\THIAMINE HYDROCHLORIDE\VITAMIN B COMPLEX
  14. VITAMIN D3 [Concomitant]
     Active Substance: CHOLECALCIFEROL
  15. TURMERIC [Concomitant]
     Active Substance: TURMERIC
  16. MAGNESIUM [Concomitant]
     Active Substance: MAGNESIUM
  17. VITAMIN C [Concomitant]
     Active Substance: ASCORBIC ACID
  18. VALERIAN ROOT [Concomitant]
     Active Substance: VALERIAN

REACTIONS (6)
  - Fatigue [None]
  - Rash [None]
  - Disorientation [None]
  - Asthenia [None]
  - Dyspnoea [None]
  - Vision blurred [None]

NARRATIVE: CASE EVENT DATE: 20160630
